FAERS Safety Report 13014544 (Version 1)
Quarter: 2016Q4

REPORT INFORMATION
  Report Type: Report from Study
  Country: DE (occurrence: DE)
  Receive Date: 20161209
  Receipt Date: 20161209
  Transmission Date: 20170207
  Serious: Yes (Other)
  Sender: FDA-Public Use
  Company Number: PHHY2015DE122041

PATIENT
  Age: 57 Year
  Sex: Female

DRUGS (1)
  1. GILENYA [Suspect]
     Active Substance: FINGOLIMOD HYDROCHLORIDE
     Indication: MULTIPLE SCLEROSIS
     Dosage: QD
     Route: 048
     Dates: start: 20140204

REACTIONS (17)
  - Cystitis [Recovered/Resolved]
  - Blood triglycerides increased [Unknown]
  - Gamma-glutamyltransferase increased [Unknown]
  - Migraine [Recovered/Resolved]
  - Hypertonia [Unknown]
  - Fatigue [Unknown]
  - Cystitis [Recovered/Resolved]
  - Depression [Unknown]
  - Thrombocytopenia [Unknown]
  - Blood cholesterol increased [Unknown]
  - Basophil count increased [Unknown]
  - Low density lipoprotein increased [Unknown]
  - Haemorrhoids [Unknown]
  - Restless legs syndrome [Recovered/Resolved]
  - Diarrhoea [Unknown]
  - Hypertension [Unknown]
  - Eosinophil count increased [Unknown]

NARRATIVE: CASE EVENT DATE: 20140204
